FAERS Safety Report 8025788-2 (Version None)
Quarter: 2012Q1

REPORT INFORMATION
  Report Type: 
  Country: None (occurrence: None)
  Receive Date: 20120105
  Receipt Date: 20110816
  Transmission Date: 20120608
  Serious: No
  Sender: FDA-Public Use
  Company Number: US-ABBOTT-11P-163-0846747-00

PATIENT
  Age: 58 Year
  Sex: Female

DRUGS (3)
  1. SYNTHROID [Suspect]
     Dates: start: 20110101, end: 20110101
  2. SYNTHROID [Suspect]
     Dates: start: 20110101
  3. SYNTHROID [Suspect]
     Indication: THYROID NEOPLASM
     Route: 048
     Dates: start: 20101001, end: 20110101

REACTIONS (2)
  - DIZZINESS [None]
  - THYROID FUNCTION TEST ABNORMAL [None]
